FAERS Safety Report 9073875 (Version 1)
Quarter: 2013Q1

REPORT INFORMATION
  Report Type: Spontaneous
  Country: US (occurrence: US)
  Receive Date: 20130129
  Receipt Date: 20130129
  Transmission Date: 20140127
  Serious: No
  Sender: FDA-Public Use
  Company Number: US-B.I. PHARMACEUTICALS,INC./RIDGEFIELD-2013-BI-01054BP

PATIENT
  Age: 60 Year
  Sex: Male

DRUGS (1)
  1. COMBIVENT [Suspect]
     Indication: ASTHMA
     Route: 055
     Dates: start: 2009, end: 20130112

REACTIONS (1)
  - Dyspnoea [Recovered/Resolved]
